FAERS Safety Report 20507693 (Version 2)
Quarter: 2022Q1

REPORT INFORMATION
  Report Type: Report from Study
  Country: MX (occurrence: MX)
  Receive Date: 20220223
  Receipt Date: 20220322
  Transmission Date: 20220423
  Serious: Yes (Other)
  Sender: FDA-Public Use
  Company Number: MX-NOVARTISPH-NVSC2022MX040799

PATIENT
  Sex: Female

DRUGS (2)
  1. IMATINIB [Suspect]
     Active Substance: IMATINIB
     Indication: Chronic myeloid leukaemia
     Dosage: 3 DOSAGE FORM, DAILY
     Route: 048
  2. IMATINIB [Suspect]
     Active Substance: IMATINIB
     Dosage: 4 DOSAGE FORM, DAILY
     Route: 048

REACTIONS (7)
  - Papillary thyroid cancer [Unknown]
  - Second primary malignancy [Unknown]
  - Stress [Unknown]
  - Feeling of despair [Unknown]
  - Blood thyroid stimulating hormone increased [Unknown]
  - Thyroid disorder [Unknown]
  - Tremor [Unknown]
